FAERS Safety Report 7941273-8 (Version None)
Quarter: 2011Q4

REPORT INFORMATION
  Report Type: 
  Country: None (occurrence: None)
  Receive Date: 20111128
  Receipt Date: 20111118
  Transmission Date: 20120403
  Serious: Yes (Death)
  Sender: FDA-Public Use
  Company Number: FI-ELI_LILLY_AND_COMPANY-FI201111006209

PATIENT
  Sex: Male

DRUGS (5)
  1. FORTEO [Suspect]
     Indication: OSTEOPOROSIS
     Dosage: 20 UG, QD
     Dates: start: 20110125
  2. PARA-TABS [Concomitant]
     Indication: PAIN
  3. SYMBICORT [Concomitant]
     Indication: ASTHMA
  4. MEDIPAM [Concomitant]
     Indication: HALLUCINATION
     Route: 030
  5. CAD [Concomitant]
     Indication: MEDICAL DIET

REACTIONS (1)
  - DEATH [None]
